FAERS Safety Report 5505008-0 (Version None)
Quarter: 2007Q4

REPORT INFORMATION
  Report Type: 
  Country: None (occurrence: None)
  Receive Date: 20071031
  Receipt Date: 20071015
  Transmission Date: 20080405
  Serious: Yes (Life-Threatening, Other)
  Sender: FDA-Public Use
  Company Number: VER_00072_2007

PATIENT
  Sex: Male
  Weight: 53.5244 kg

DRUGS (3)
  1. EPINEPHERINE            (TWINJECT) [Suspect]
     Indication: ANAPHYLACTIC REACTION
     Dosage: (0.3 MG INTRAMUSCULAR/SUBCUTANEOUS)
     Route: 058
  2. CLARITIN [Concomitant]
  3. ALLEGRA [Concomitant]

REACTIONS (2)
  - DEVICE FAILURE [None]
  - PHARMACEUTICAL PRODUCT COMPLAINT [None]
